FAERS Safety Report 9900080 (Version 1)
Quarter: 2014Q1

REPORT INFORMATION
  Report Type: Spontaneous
  Country: DE (occurrence: DE)
  Receive Date: 20140214
  Receipt Date: 20140214
  Transmission Date: 20141002
  Serious: Yes (Other)
  Sender: FDA-Public Use
  Company Number: DE-GILEAD-2014-0094379

PATIENT
  Age: 44 Year
  Sex: Male
  Weight: 90 kg

DRUGS (2)
  1. TRUVADA [Suspect]
     Indication: HIV INFECTION
     Dosage: UNK
     Route: 065
     Dates: start: 20110228, end: 201309
  2. ISENTRESS [Concomitant]
     Indication: HIV INFECTION
     Dosage: UNK
     Route: 065
     Dates: end: 201309

REACTIONS (1)
  - Hepatitis C [Not Recovered/Not Resolved]
